FAERS Safety Report 11502174 (Version 1)
Quarter: 2015Q3

REPORT INFORMATION
  Report Type: Spontaneous
  Country: US (occurrence: None)
  Receive Date: 20150914
  Receipt Date: 20150914
  Transmission Date: 20151125
  Serious: Yes (Other)
  Sender: FDA-Public Use
  Company Number: ADR-2015-01532

PATIENT
  Age: 41 Year
  Sex: Male

DRUGS (1)
  1. COMPOUNDED BACLOFEN INTRATHEL 3000 MCG/ML [Suspect]
     Active Substance: BACLOFEN
     Indication: MUSCLE SPASTICITY
     Dosage: 674.0 MCG/DAY

REACTIONS (2)
  - Muscle spasticity [None]
  - Muscle spasms [None]
